FAERS Safety Report 7670705 (Version 3)
Quarter: 2013Q2

REPORT INFORMATION
  Report Type: Report from Study
  Country: AU (occurrence: AU)
  Receive Date: 20101116
  Receipt Date: 20130611
  Transmission Date: 20140414
  Serious: Yes (Hospitalization)
  Sender: FDA-Public Use
  Company Number: PHHO2010AU16701

PATIENT
  Age: 31 Year
  Sex: Male

DRUGS (4)
  1. AEB071 [Suspect]
     Indication: RENAL TRANSPLANT
     Dosage: 300 MG, BID
     Route: 048
     Dates: start: 20100715
  2. SIMULECT / CHI 621A / SDZ CHI 621 [Suspect]
     Indication: RENAL TRANSPLANT
     Route: 042
  3. TACROLIMUS [Suspect]
     Indication: RENAL TRANSPLANT
     Route: 048
  4. CORTICOSTEROIDS [Suspect]
     Indication: RENAL TRANSPLANT
     Route: 048

REACTIONS (5)
  - Impaired healing [Recovering/Resolving]
  - Necrosis [Recovered/Resolved]
  - Gait disturbance [Recovered/Resolved]
  - Hypokinesia [Recovered/Resolved]
  - Wound secretion [Recovered/Resolved]
